FAERS Safety Report 9307420 (Version 1)
Quarter: 2013Q2

REPORT INFORMATION
  Report Type: Spontaneous
  Country: CN (occurrence: CN)
  Receive Date: 20130524
  Receipt Date: 20130524
  Transmission Date: 20140414
  Serious: Yes (Other)
  Sender: FDA-Public Use
  Company Number: CN-JNJFOC-20130510841

PATIENT
  Age: 48 Year
  Sex: Male

DRUGS (2)
  1. IMODIUM [Suspect]
     Route: 048
  2. IMODIUM [Suspect]
     Indication: DIARRHOEA
     Dosage: 4 MG AS THE INITIAL DOSE AND 2 MG 4 HOURS LATER, 3 TIMES IN TOTAL
     Route: 048
     Dates: start: 20121208, end: 20121208

REACTIONS (3)
  - Intestinal obstruction [Unknown]
  - Abdominal pain [Unknown]
  - Abdominal distension [Recovering/Resolving]
